FAERS Safety Report 17608031 (Version 1)
Quarter: 2020Q1

REPORT INFORMATION
  Report Type: Spontaneous
  Country: TW (occurrence: TW)
  Receive Date: 20200331
  Receipt Date: 20200331
  Transmission Date: 20200409
  Serious: Yes (Life-Threatening, Other)
  Sender: FDA-Public Use
  Company Number: TW-AMGEN-TWNSP2020048190

PATIENT
  Age: 7 Year
  Sex: Male

DRUGS (1)
  1. DARBEPOETIN ALFA [Suspect]
     Active Substance: DARBEPOETIN ALFA
     Indication: INBORN ERROR OF METABOLISM
     Dosage: UNK UNK, QWK
     Route: 065

REACTIONS (6)
  - Decorticate posture [Unknown]
  - Magnetic resonance imaging brain abnormal [Unknown]
  - Cardio-respiratory arrest [Unknown]
  - Serotonin syndrome [Unknown]
  - Hypovolaemic shock [Unknown]
  - Dehydration [Unknown]
